FAERS Safety Report 18738814 (Version 2)
Quarter: 2021Q1

REPORT INFORMATION
  Report Type: Spontaneous
  Country: US (occurrence: US)
  Receive Date: 20210114
  Receipt Date: 20210212
  Transmission Date: 20210419
  Serious: Yes (Death)
  Sender: FDA-Public Use
  Company Number: US-ROCHE-2749042

PATIENT
  Sex: Male

DRUGS (3)
  1. AVASTIN [Suspect]
     Active Substance: BEVACIZUMAB
     Indication: DIABETIC RETINOPATHY
  2. AVASTIN [Suspect]
     Active Substance: BEVACIZUMAB
     Indication: MACULAR OEDEMA
  3. AVASTIN [Suspect]
     Active Substance: BEVACIZUMAB
     Indication: TYPE 2 DIABETES MELLITUS
     Route: 065

REACTIONS (3)
  - Off label use [Unknown]
  - Intentional product use issue [Unknown]
  - Death [Fatal]
